FAERS Safety Report 5289379-9 (Version None)
Quarter: 2007Q2

REPORT INFORMATION
  Report Type: 
  Country: None (occurrence: None)
  Receive Date: 20070404
  Receipt Date: 20070404
  Transmission Date: 20071010
  Serious: Yes (Life-Threatening, Disabling, Other)
  Sender: FDA-Public Use
  Company Number: None

PATIENT
  Sex: Male
  Weight: 63.05 kg

DRUGS (2)
  1. LEVEMIR [Suspect]
     Indication: BLOOD GLUCOSE FLUCTUATION
     Dosage: TWICE DAILY
     Dates: start: 20070301, end: 20070403
  2. LEVEMIR [Suspect]

REACTIONS (1)
  - PHARMACEUTICAL PRODUCT COMPLAINT [None]
